FAERS Safety Report 8266956-4 (Version None)
Quarter: 2012Q2

REPORT INFORMATION
  Report Type: 
  Country: None (occurrence: None)
  Receive Date: 20120404
  Receipt Date: 20120404
  Transmission Date: 20120825
  Serious: Yes (Other)
  Sender: FDA-Public Use
  Company Number: None

PATIENT
  Age: 53 Year
  Sex: Female
  Weight: 81.1939 kg

DRUGS (8)
  1. ORENCIA [Suspect]
     Indication: RHEUMATOID ARTHRITIS
     Dosage: 1000 MG 1ST DOSE OF INDUCTION IV
     Route: 042
     Dates: start: 20120302
  2. LIPITOR [Concomitant]
  3. LEVOTHYROXINE SODIUM [Concomitant]
  4. VOLTAREN 1% [Concomitant]
  5. VICODIN [Concomitant]
  6. CALCIUM CARBONATE [Concomitant]
  7. LIDODERM [Concomitant]
  8. VALTREX [Concomitant]

REACTIONS (8)
  - EAR PRURITUS [None]
  - THROAT TIGHTNESS [None]
  - TREMOR [None]
  - CHILLS [None]
  - DYSPNOEA [None]
  - CHEST DISCOMFORT [None]
  - PALPITATIONS [None]
  - WHEEZING [None]
